FAERS Safety Report 4588062-2 (Version None)
Quarter: 2005Q1

REPORT INFORMATION
  Report Type: 
  Country: None (occurrence: None)
  Receive Date: 20050216
  Receipt Date: 20050128
  Transmission Date: 20050727
  Serious: Yes (Hospitalization)
  Sender: FDA-Public Use
  Company Number: JP_040904353

PATIENT
  Age: 35 Year
  Sex: Male
  Weight: 61 kg

DRUGS (6)
  1. ZYPREXA [Suspect]
     Indication: SCHIZOPHRENIA, DISORGANISED TYPE
     Dosage: 10 MG/1 DAY
     Dates: start: 20021030, end: 20030802
  2. SELBEX (TEPRENONE) [Concomitant]
  3. DIHYDERGOT (DIHYDROERGOTAMINE MESILATE) [Concomitant]
  4. EFFORTIL (ETILEFRINE HYDROCHLORIDE) [Concomitant]
  5. RISUMIC (AMEZINIUM METILSULFATE) [Concomitant]
  6. SOMELIN (HALOXAZOLAM) [Concomitant]

REACTIONS (7)
  - ANGER [None]
  - ANOREXIA [None]
  - HALLUCINATION, AUDITORY [None]
  - NAUSEA [None]
  - PSYCHIATRIC SYMPTOM [None]
  - SOLILOQUY [None]
  - WEIGHT DECREASED [None]
